FAERS Safety Report 5195442-3 (Version None)
Quarter: 2006Q4

REPORT INFORMATION
  Report Type: 
  Country: None (occurrence: None)
  Receive Date: 20061230
  Receipt Date: 20061222
  Transmission Date: 20070319
  Serious: Yes (Other)
  Sender: FDA-Public Use
  Company Number: IT-ABBOTT-06P-083-0354104-00

PATIENT
  Sex: Male

DRUGS (2)
  1. MACLADIN [Suspect]
     Indication: PHARYNGITIS
     Route: 048
     Dates: start: 20061215, end: 20061216
  2. ASPIRIN [Concomitant]
     Indication: DRUG USE FOR UNKNOWN INDICATION
     Route: 048
     Dates: start: 20061215, end: 20061215

REACTIONS (2)
  - ANGIONEUROTIC OEDEMA [None]
  - URTICARIA [None]
